FAERS Safety Report 7590677-4 (Version None)
Quarter: 2011Q3

REPORT INFORMATION
  Report Type: 
  Country: None (occurrence: None)
  Receive Date: 20110705
  Receipt Date: 20110623
  Transmission Date: 20111222
  Serious: Yes (Other)
  Sender: FDA-Public Use
  Company Number: PHHY2011GB55929

PATIENT
  Age: 18 Month
  Sex: Male

DRUGS (6)
  1. DACTINOMYCIN [Suspect]
     Dosage: 2.52MG CUMULATIVE DOSE
  2. VINCRISTINE [Suspect]
     Dosage: 10.92 MG CUMULATIVE DOSE
  3. ETOPOSIDE [Suspect]
     Dosage: 1176 MG CUMULATIVE DOSE
  4. EPIRUBICIN [Suspect]
     Dosage: 840 MG CUMULATIVE DOSE
  5. CARBOPLATIN [Suspect]
     Dosage: 840 MG CUMULATIVE DOSE
  6. IFOSFAMIDE [Suspect]
     Dosage: 18480MG CUMULATIVE DOSE

REACTIONS (3)
  - THYROID DISORDER [None]
  - NEOPLASM MALIGNANT [None]
  - THYROID CANCER [None]
